FAERS Safety Report 7921401-0 (Version None)
Quarter: 2011Q4

REPORT INFORMATION
  Report Type: 
  Country: None (occurrence: None)
  Receive Date: 20111117
  Receipt Date: 20111109
  Transmission Date: 20120403
  Serious: Yes (Other)
  Sender: FDA-Public Use
  Company Number: US-RB-029860-11

PATIENT
  Age: 27 Year
  Sex: Female

DRUGS (1)
  1. MUCINEX D [Suspect]
     Indication: PRODUCT USED FOR UNKNOWN INDICATION
     Route: 048
     Dates: start: 20111107

REACTIONS (2)
  - DIZZINESS [None]
  - HAEMATOCHEZIA [None]
